FAERS Safety Report 8018663-0 (Version None)
Quarter: 2012Q1

REPORT INFORMATION
  Report Type: 
  Country: None (occurrence: None)
  Receive Date: 20120103
  Receipt Date: 20120103
  Transmission Date: 20120608
  Serious: Yes (Other)
  Sender: FDA-Public Use
  Company Number: None

PATIENT
  Age: 78 Year
  Sex: Female
  Weight: 90.718 kg

DRUGS (1)
  1. OMEPRAZOLE [Suspect]
     Dates: start: 20091020, end: 20111020

REACTIONS (2)
  - BONE LOSS [None]
  - DIARRHOEA [None]
